FAERS Safety Report 5770754-0 (Version None)
Quarter: 2008Q2

REPORT INFORMATION
  Report Type: 
  Country: None (occurrence: None)
  Receive Date: 20080613
  Receipt Date: 20080513
  Transmission Date: 20081010
  Serious: No
  Sender: FDA-Public Use
  Company Number: US-ABBOTT-08P-163-0451602-00

PATIENT
  Sex: Female
  Weight: 49.94 kg

DRUGS (4)
  1. HUMIRA [Suspect]
     Indication: CROHN'S DISEASE
     Route: 058
     Dates: start: 20071001
  2. MESALAMINE [Concomitant]
     Indication: CROHN'S DISEASE
     Dosage: 250 MILLIGRAMS X 4 THREE TIMES A DAY
     Route: 048
     Dates: start: 20071001
  3. BUDESONIDE [Concomitant]
     Indication: CROHN'S DISEASE
     Dosage: DOSE FORM: 3 MILLIGRAMS
     Route: 048
  4. OMEPRAZOLE [Concomitant]
     Indication: GASTROOESOPHAGEAL REFLUX DISEASE
     Route: 048

REACTIONS (1)
  - SINUSITIS [None]
